FAERS Safety Report 21499738 (Version 1)
Quarter: 2022Q4

REPORT INFORMATION
  Report Type: Spontaneous
  Country: US (occurrence: US)
  Receive Date: 20221024
  Receipt Date: 20221024
  Transmission Date: 20230112
  Serious: Yes (Hospitalization)
  Sender: FDA-Public Use
  Company Number: US-MYLANLABS-2022M1115488

PATIENT
  Sex: Female

DRUGS (1)
  1. PHENYTOIN [Suspect]
     Active Substance: PHENYTOIN
     Indication: Trigeminal neuralgia
     Dosage: UNK

REACTIONS (6)
  - Toxicity to various agents [Unknown]
  - Anticonvulsant drug level increased [Unknown]
  - Memory impairment [Unknown]
  - Aphasia [Unknown]
  - Fall [Unknown]
  - Off label use [Unknown]
